FAERS Safety Report 23627512 (Version 1)
Quarter: 2024Q1

REPORT INFORMATION
  Report Type: Report from Study
  Country: ES (occurrence: ES)
  Receive Date: 20240313
  Receipt Date: 20240313
  Transmission Date: 20240409
  Serious: Yes (Hospitalization)
  Sender: FDA-Public Use
  Company Number: None

PATIENT
  Age: 66 Year

DRUGS (2)
  1. TOPOTECAN [Suspect]
     Active Substance: TOPOTECAN HYDROCHLORIDE
     Indication: Small cell lung cancer
     Dosage: 2.2 MG/M2 ALTERNATE DAYS,TOPOTECAN (212A)
     Route: 042
     Dates: start: 20220726, end: 20220729
  2. FILGRASTIM [Suspect]
     Active Substance: FILGRASTIM
     Indication: Product used for unknown indication
     Dosage: 30 UI,FILGRASTIM (7089A)
     Route: 065
     Dates: start: 20220730

REACTIONS (3)
  - Asthenia [Unknown]
  - Decreased appetite [Unknown]
  - Pancytopenia [Recovering/Resolving]

NARRATIVE: CASE EVENT DATE: 20220730
